FAERS Safety Report 4372803-3 (Version None)
Quarter: 2004Q2

REPORT INFORMATION
  Report Type: 
  Country: None (occurrence: None)
  Receive Date: 20040603
  Receipt Date: 20040521
  Transmission Date: 20050107
  Serious: Yes (Other)
  Sender: FDA-Public Use
  Company Number: 2004214556JP

PATIENT

DRUGS (1)
  1. HALCION [Suspect]
     Dosage: 27.5 G/DAY, ORAL
     Route: 048

REACTIONS (4)
  - DRUG TOXICITY [None]
  - OVERDOSE [None]
  - RENAL FAILURE ACUTE [None]
  - RHABDOMYOLYSIS [None]
